FAERS Safety Report 22277403 (Version 1)
Quarter: 2023Q2

REPORT INFORMATION
  Report Type: Spontaneous
  Country: CN (occurrence: CN)
  Receive Date: 20230503
  Receipt Date: 20230503
  Transmission Date: 20230722
  Serious: Yes (Other)
  Sender: FDA-Public Use
  Company Number: None

PATIENT
  Age: 44 Year
  Sex: Female
  Weight: 80 kg

DRUGS (9)
  1. CYCLOPHOSPHAMIDE [Suspect]
     Active Substance: CYCLOPHOSPHAMIDE
     Indication: Breast cancer female
     Dosage: 1000 MG, QD
     Route: 041
     Dates: start: 20230407, end: 20230407
  2. CYCLOPHOSPHAMIDE [Suspect]
     Active Substance: CYCLOPHOSPHAMIDE
     Indication: Chemotherapy
  3. CYCLOPHOSPHAMIDE [Suspect]
     Active Substance: CYCLOPHOSPHAMIDE
     Indication: Neoplasm
  4. EPIRUBICIN HYDROCHLORIDE [Suspect]
     Active Substance: EPIRUBICIN HYDROCHLORIDE
     Indication: Breast cancer female
     Dosage: 190 MG, QD
     Route: 041
     Dates: start: 20230407, end: 20230407
  5. EPIRUBICIN HYDROCHLORIDE [Suspect]
     Active Substance: EPIRUBICIN HYDROCHLORIDE
     Indication: Chemotherapy
  6. EPIRUBICIN HYDROCHLORIDE [Suspect]
     Active Substance: EPIRUBICIN HYDROCHLORIDE
     Indication: Neoplasm
  7. DIPHENHYDRAMINE [Concomitant]
     Active Substance: DIPHENHYDRAMINE
     Dosage: 20 MG, WERE GIVEN HALF AN HOUR BEFORE CHEMOTHERAPY
     Route: 030
     Dates: start: 20230407
  8. DEXAMETHASONE [Concomitant]
     Active Substance: DEXAMETHASONE
     Dosage: 20 MG, WERE GIVEN HALF AN HOUR BEFORE CHEMOTHERAPY
     Route: 030
     Dates: start: 20230407
  9. TROPISETRON [Concomitant]
     Active Substance: TROPISETRON
     Indication: Premedication
     Dosage: UNK
     Route: 065
     Dates: start: 20230407

REACTIONS (1)
  - Regurgitation [Recovering/Resolving]

NARRATIVE: CASE EVENT DATE: 20230408
